FAERS Safety Report 9299267 (Version 2)
Quarter: 2013Q3

REPORT INFORMATION
  Report Type: Spontaneous
  Country: US (occurrence: US)
  Receive Date: 20130520
  Receipt Date: 20130717
  Transmission Date: 20140515
  Serious: No
  Sender: FDA-Public Use
  Company Number: US-009507513-1305USA010246

PATIENT
  Age: 79 Year
  Sex: Male
  Weight: 68.93 kg

DRUGS (4)
  1. COSOPT PF [Suspect]
     Indication: GLAUCOMA
     Dosage: 4 GTT, BID
     Route: 047
     Dates: start: 20130103, end: 201303
  2. ATENOLOL [Concomitant]
  3. SINEQUAN [Concomitant]
  4. LUMIGAN [Concomitant]
     Indication: GLAUCOMA
     Dosage: 2 GTT, OU
     Route: 047

REACTIONS (2)
  - Eye irritation [Not Recovered/Not Resolved]
  - Product container issue [Unknown]
